FAERS Safety Report 5062866-4 (Version None)
Quarter: 2006Q3

REPORT INFORMATION
  Report Type: 
  Country: None (occurrence: None)
  Receive Date: 20060724
  Receipt Date: 20060713
  Transmission Date: 20061208
  Serious: Yes (Hospitalization, Other)
  Sender: FDA-Public Use
  Company Number: 2005142159

PATIENT
  Age: 30 Year
  Sex: Female

DRUGS (9)
  1. ALPRAZOLAM [Suspect]
     Indication: ANXIETY
     Dosage: 0.5 MG (0.5 MG, 1 IN 1 D), ORAL
     Route: 048
     Dates: start: 20050801, end: 20051201
  2. ALPRAZOLAM [Suspect]
     Indication: DEPRESSION
     Dosage: 0.5 MG (0.5 MG, 1 IN 1 D), ORAL
     Route: 048
     Dates: start: 20050801, end: 20051201
  3. OMEPRAZOLE [Concomitant]
  4. FLUOXETINE [Concomitant]
  5. LEVONORGESTREL [Concomitant]
  6. PAROXETINE HCL [Concomitant]
  7. LEVONORGESTREL W/ETHINYLESTRADIOL (ETHINYLESTRADIOL, LEVONORGESTREL) [Concomitant]
  8. ETHINYL ESTRADIOL TAB [Concomitant]
  9. DEPAKENE [Concomitant]

REACTIONS (28)
  - ABDOMINAL DISTENSION [None]
  - ALOPECIA [None]
  - ANXIETY [None]
  - ASTHENIA [None]
  - BACK PAIN [None]
  - CONDITION AGGRAVATED [None]
  - CONSTIPATION [None]
  - DEPRESSION [None]
  - DRUG INEFFECTIVE [None]
  - DRUG WITHDRAWAL SYNDROME [None]
  - DRY THROAT [None]
  - FLATULENCE [None]
  - GASTRITIS [None]
  - HYPOKINESIA [None]
  - INSOMNIA [None]
  - MICTURITION URGENCY [None]
  - MUSCLE RIGIDITY [None]
  - NAIL BED BLEEDING [None]
  - NAIL DISORDER [None]
  - NECK PAIN [None]
  - NERVOUSNESS [None]
  - OEDEMA PERIPHERAL [None]
  - PAIN IN EXTREMITY [None]
  - SEDATION [None]
  - SLEEP DISORDER [None]
  - SOMNOLENCE [None]
  - SUICIDE ATTEMPT [None]
  - TREMOR [None]
